FAERS Safety Report 11431826 (Version 1)
Quarter: 2015Q3

REPORT INFORMATION
  Report Type: Spontaneous
  Country: US (occurrence: US)
  Receive Date: 20150828
  Receipt Date: 20150828
  Transmission Date: 20151125
  Serious: No
  Sender: FDA-Public Use
  Company Number: US-SEBELA IRELAND LIMITED-2014SEB00080

PATIENT
  Sex: Female

DRUGS (1)
  1. CALCITONIN-SALMON [Suspect]
     Active Substance: CALCITONIN SALMON

REACTIONS (1)
  - Nasal mucosal disorder [Unknown]
